FAERS Safety Report 5247774-8 (Version None)
Quarter: 2007Q1

REPORT INFORMATION
  Report Type: 
  Country: None (occurrence: None)
  Receive Date: 20070227
  Receipt Date: 20070220
  Transmission Date: 20070707
  Serious: Yes (Hospitalization, Other)
  Sender: FDA-Public Use
  Company Number: US-AVENTIS-200617166US

PATIENT
  Age: 80 Year
  Sex: Female

DRUGS (14)
  1. LANTUS [Suspect]
     Dates: start: 20060101
  2. LANTUS [Suspect]
     Dates: start: 20060817
  3. LANTUS [Suspect]
     Dates: start: 20060823
  4. OPTICLIK (INSULIN INJECTION PEN) [Suspect]
  5. AMARYL [Concomitant]
     Dosage: DOSE: UNK
  6. DIOVANE [Concomitant]
     Dosage: DOSE: UNK
  7. LASIX [Concomitant]
     Dosage: DOSE: UNK
  8. POTASSIUM SUPPLEMENT [Concomitant]
     Dosage: DOSE: UNK
  9. COLACE [Concomitant]
     Dosage: DOSE: UNK
  10. ZOLOFT [Concomitant]
     Dosage: DOSE: UNK
  11. M.V.I. [Concomitant]
     Dosage: DOSE: UNK
  12. ALPHAGAN                           /01341102/ [Concomitant]
     Dosage: DOSE: UNK
  13. COSOPT                             /01419801/ [Concomitant]
     Dosage: DOSE: UNK
  14. REGLAN                             /00041901/ [Concomitant]
     Dosage: DOSE: UNK

REACTIONS (8)
  - BLOOD GLUCOSE DECREASED [None]
  - BLOOD GLUCOSE INCREASED [None]
  - COLON CANCER [None]
  - DECREASED APPETITE [None]
  - HYPONATRAEMIA [None]
  - ILEUS [None]
  - IMPAIRED GASTRIC EMPTYING [None]
  - WEIGHT DECREASED [None]
